FAERS Safety Report 6786127-8 (Version None)
Quarter: 2010Q2

REPORT INFORMATION
  Report Type: 
  Country: None (occurrence: None)
  Receive Date: 20100623
  Receipt Date: 20100414
  Transmission Date: 20101027
  Serious: Yes (Death, Other)
  Sender: FDA-Public Use
  Company Number: DE-ASTRAZENECA-2010SE17003

PATIENT
  Age: 86 Year
  Sex: Female

DRUGS (9)
  1. SEROQUEL [Suspect]
     Indication: AGGRESSION
     Route: 048
     Dates: start: 20030101, end: 20030101
  2. SEROQUEL [Suspect]
     Indication: RESTLESSNESS
     Route: 048
     Dates: start: 20030101, end: 20030101
  3. SEROQUEL [Suspect]
     Indication: DECREASED APPETITE
     Route: 048
     Dates: start: 20030101, end: 20030101
  4. SEROQUEL [Suspect]
     Route: 048
     Dates: start: 20070501, end: 20091201
  5. SEROQUEL [Suspect]
     Route: 048
     Dates: start: 20070501, end: 20091201
  6. SEROQUEL [Suspect]
     Route: 048
     Dates: start: 20070501, end: 20091201
  7. SEROQUEL [Suspect]
     Route: 048
     Dates: start: 20091201, end: 20100209
  8. SEROQUEL [Suspect]
     Route: 048
     Dates: start: 20091201, end: 20100209
  9. SEROQUEL [Suspect]
     Route: 048
     Dates: start: 20091201, end: 20100209

REACTIONS (7)
  - DISEASE PROGRESSION [None]
  - DYSURIA [None]
  - FEMORAL NECK FRACTURE [None]
  - GAIT DISTURBANCE [None]
  - LOSS OF CONSCIOUSNESS [None]
  - OFF LABEL USE [None]
  - VOMITING [None]
